FAERS Safety Report 9654398 (Version 1)
Quarter: 2013Q4

REPORT INFORMATION
  Report Type: Spontaneous
  Country: US (occurrence: None)
  Receive Date: 20131021
  Receipt Date: 20131021
  Transmission Date: 20140711
  Serious: Yes (Other)
  Sender: FDA-Public Use
  Company Number: 2012031717

PATIENT
  Sex: Female
  Weight: 79.38 kg

DRUGS (14)
  1. HIZENTRA [Suspect]
     Indication: IMMUNODEFICIENCY COMMON VARIABLE
     Dosage: 16 G, 4GM ON 4 SITES SUBCUTANEOUS) ,(SUBCUTANEOUS) ( 16 G 1X / 2 WEEKS, 4 SITES SUBCUTANEOUS)
     Dates: start: 20120309
  2. XANAX (ALPRAZOLAM) [Concomitant]
  3. SOMA (CARISOPRODOL) [Concomitant]
  4. NEURONTIN (GABAPENTIN) [Concomitant]
  5. TEGRETOL (CARBAMAZEPINE) [Concomitant]
  6. PROZAC (FLUOXETINE HYDROCHLORIDE) [Concomitant]
  7. TRAMADOL [Concomitant]
  8. OPANA ER [Concomitant]
  9. ADDERALL (OBETROL) [Concomitant]
  10. VITAMIN B-6 (PYRIDOXINE HYDROCHLORIDE) [Concomitant]
  11. EPI-PEN (EPINEPHRINE) [Concomitant]
  12. FLAGYL (METRONIDAZOLE) [Concomitant]
  13. CIPRO (CIPROFLOXACIN) [Concomitant]
  14. VANCOMYCIN (VANCOMYCIN) [Concomitant]

REACTIONS (5)
  - Infection [None]
  - Infusion site pain [None]
  - Sinusitis [None]
  - Abortion spontaneous [None]
  - Exposure during pregnancy [None]
